FAERS Safety Report 7382287-9 (Version None)
Quarter: 2011Q1

REPORT INFORMATION
  Report Type: 
  Country: None (occurrence: None)
  Receive Date: 20110329
  Receipt Date: 20110323
  Transmission Date: 20110831
  Serious: Yes (Hospitalization, Other)
  Sender: FDA-Public Use
  Company Number: US-RB-022628-11

PATIENT
  Age: 24 Year
  Sex: Male

DRUGS (4)
  1. SUBOXONE [Suspect]
     Indication: DRUG DEPENDENCE
     Dosage: SUBLINGUAL FILM
     Route: 060
     Dates: start: 20110101, end: 20110216
  2. SUBOXONE [Suspect]
     Indication: DRUG DEPENDENCE
     Route: 060
     Dates: start: 20101001, end: 20110101
  3. SUBOXONE [Suspect]
     Route: 060
     Dates: start: 20110217, end: 20110220
  4. SUBOXONE [Suspect]
     Dosage: SUBLINGUAL FILM
     Route: 060
     Dates: start: 20110221

REACTIONS (5)
  - INTESTINAL OBSTRUCTION [None]
  - CONSTIPATION [None]
  - ABDOMINAL PAIN UPPER [None]
  - VOMITING [None]
  - INTENTIONAL DRUG MISUSE [None]
